FAERS Safety Report 14138914 (Version 2)
Quarter: 2018Q1

REPORT INFORMATION
  Report Type: Spontaneous
  Country: None (occurrence: US)
  Receive Date: 20171027
  Receipt Date: 20180315
  Transmission Date: 20180508
  Serious: Yes (Hospitalization, Other)
  Sender: FDA-Public Use
  Company Number: US-MEDAC PHARMA, INC.-2031769

PATIENT
  Age: 64 Year
  Sex: Female

DRUGS (8)
  1. HYDROXYCHLOROQUINE SULFATE. [Concomitant]
     Active Substance: HYDROXYCHLOROQUINE SULFATE
  2. RASUVO [Suspect]
     Active Substance: METHOTREXATE SODIUM
  3. HUMIRA [Suspect]
     Active Substance: ADALIMUMAB
     Route: 058
     Dates: start: 2008, end: 20170902
  4. SYNTHROID [Concomitant]
     Active Substance: LEVOTHYROXINE SODIUM
  5. METHOTREXATE. [Concomitant]
     Active Substance: METHOTREXATE
  6. HYDROCHLOROTHIAZIDE. [Concomitant]
     Active Substance: HYDROCHLOROTHIAZIDE
  7. AMLODIPINE [Concomitant]
     Active Substance: AMLODIPINE BESYLATE
  8. IRON [Suspect]
     Active Substance: IRON

REACTIONS (13)
  - Knee arthroplasty [Unknown]
  - Abdominal pain upper [Unknown]
  - Procedural pain [Unknown]
  - Fatigue [Unknown]
  - Blood iron abnormal [Recovering/Resolving]
  - Osteoarthritis [Unknown]
  - Iron deficiency anaemia [Unknown]
  - Arthritis [Recovered/Resolved]
  - Rheumatoid arthritis [Unknown]
  - Post procedural contusion [Not Recovered/Not Resolved]
  - Nausea [Unknown]
  - Joint swelling [Unknown]
  - Arthralgia [Unknown]

NARRATIVE: CASE EVENT DATE: 2016
